FAERS Safety Report 22065937 (Version 2)
Quarter: 2023Q1

REPORT INFORMATION
  Report Type: Report from Study
  Country: EG (occurrence: EG)
  Receive Date: 20230306
  Receipt Date: 20230306
  Transmission Date: 20230417
  Serious: Yes (Other)
  Sender: FDA-Public Use
  Company Number: EG-002147023-NVSC2023EG046515

PATIENT
  Age: 44 Year
  Sex: Female

DRUGS (4)
  1. COSENTYX [Suspect]
     Active Substance: SECUKINUMAB
     Indication: Psoriasis
     Dosage: UNK ( LOADING DOSE : 2 PENS WEEKLY FOR A MONTH - MAINTENANCE DOSE : 2 PENS MONTHLY FOR 5 MONTHS)
     Route: 058
     Dates: start: 20210301, end: 20210901
  2. COSENTYX [Suspect]
     Active Substance: SECUKINUMAB
     Dosage: UNK (LOADING DOSE : 2 PENS WEEKLY FOR A MONTH. MAINTENANCE DOSE : 2 PENS MONTHLY FOR 5 MONTHS TO BE
     Route: 058
     Dates: start: 20230102
  3. BISOPROLOL FUMARATE [Concomitant]
     Active Substance: BISOPROLOL FUMARATE
     Indication: Hypertension
     Dosage: 1 DOSAGE FORM, QD (7 YEARS AGO)
     Route: 065
  4. NORVASC [Concomitant]
     Active Substance: AMLODIPINE BESYLATE
     Indication: Hypertension
     Dosage: 1 DOSAGE FORM, QD (7 YEARS AGO)
     Route: 065

REACTIONS (1)
  - Psoriasis [Recovering/Resolving]

NARRATIVE: CASE EVENT DATE: 20211001
